FAERS Safety Report 6880591-1 (Version None)
Quarter: 2010Q3

REPORT INFORMATION
  Report Type: 
  Country: None (occurrence: None)
  Receive Date: 20100727
  Receipt Date: 20091007
  Transmission Date: 20110219
  Serious: No
  Sender: FDA-Public Use
  Company Number: A0810745A

PATIENT
  Age: 67 Year
  Sex: Female

DRUGS (6)
  1. ZANTAC [Suspect]
     Dosage: 150MG THREE TIMES PER DAY
     Route: 048
     Dates: start: 20050101
  2. PROMETRIUM [Concomitant]
  3. PREMARIN [Concomitant]
  4. ZOLOFT [Concomitant]
  5. AMBIEN [Concomitant]
  6. AVAPRO [Concomitant]

REACTIONS (2)
  - ABASIA [None]
  - MYALGIA [None]
